FAERS Safety Report 17225935 (Version 1)
Quarter: 2019Q4

REPORT INFORMATION
  Report Type: Spontaneous
  Country: US (occurrence: US)
  Receive Date: 20191210
  Receipt Date: 20191210
  Transmission Date: 20200122
  Serious: Yes (Other)
  Sender: FDA-Public Use
  Company Number: None

PATIENT
  Age: 41 Year
  Sex: Female

DRUGS (3)
  1. TASIGNA [Suspect]
     Active Substance: NILOTINIB
     Indication: CHRONIC MYELOID LEUKAEMIA
     Route: 048
     Dates: start: 20171009
  2. VALTREX TAB 1GM [Concomitant]
  3. SPIRONOLACT TAB 50MG [Concomitant]
     Active Substance: SPIRONOLACTONE

REACTIONS (2)
  - Fatigue [None]
  - Nausea [None]
